FAERS Safety Report 9280849 (Version 2)
Quarter: 2013Q2

REPORT INFORMATION
  Report Type: Spontaneous
  Country: CL (occurrence: CL)
  Receive Date: 20130509
  Receipt Date: 20130517
  Transmission Date: 20140414
  Serious: Yes (Life-Threatening)
  Sender: FDA-Public Use
  Company Number: CL-BRISTOL-MYERS SQUIBB COMPANY-18867895

PATIENT
  Sex: 0

DRUGS (1)
  1. KOMBIGLYZE XR [Suspect]
     Dosage: TABS
     Route: 048

REACTIONS (1)
  - Anaphylactic shock [Unknown]
